FAERS Safety Report 23284449 (Version 2)
Quarter: 2023Q4

REPORT INFORMATION
  Report Type: Spontaneous
  Country: US (occurrence: US)
  Receive Date: 20231211
  Receipt Date: 20231229
  Transmission Date: 20240110
  Serious: No
  Sender: FDA-Public Use
  Company Number: US-PFIZER INC-202300414956

PATIENT
  Age: 67 Year
  Sex: Female
  Weight: 90.249 kg

DRUGS (3)
  1. PAXLOVID [Suspect]
     Active Substance: NIRMATRELVIR\RITONAVIR
     Indication: COVID-19 treatment
     Dosage: 3 PILLS IN AM, 3 PILLS IN PM
     Dates: start: 20231126
  2. BUPROPION [Concomitant]
     Active Substance: BUPROPION
     Indication: Depression
     Dosage: UNK
     Route: 048
     Dates: start: 20231030, end: 20231125
  3. BUSPIRONE [Concomitant]
     Active Substance: BUSPIRONE HYDROCHLORIDE
     Indication: Anxiety
     Dosage: UNK
     Route: 048
     Dates: start: 202103, end: 20231125

REACTIONS (5)
  - Diarrhoea [Recovered/Resolved]
  - Faeces discoloured [Recovered/Resolved]
  - Abdominal pain lower [Recovered/Resolved]
  - Dysgeusia [Unknown]
  - Tongue coated [Unknown]

NARRATIVE: CASE EVENT DATE: 20231126
